FAERS Safety Report 7976586-7 (Version None)
Quarter: 2011Q4

REPORT INFORMATION
  Report Type: 
  Country: None (occurrence: None)
  Receive Date: 20111213
  Receipt Date: 20111027
  Transmission Date: 20120403
  Serious: No
  Sender: FDA-Public Use
  Company Number: US-AMGEN-USASP2011055820

PATIENT
  Age: 72 Year
  Sex: Female

DRUGS (3)
  1. ENBREL [Suspect]
     Indication: RHEUMATOID ARTHRITIS
     Dosage: 50 MG, QWK
     Dates: start: 20110426
  2. METHOTREXATE [Concomitant]
     Dosage: 1 MG, QWK
     Dates: start: 20090101
  3. PLAQUENIL [Concomitant]
     Dosage: 1 MG, QD
     Dates: start: 20090801

REACTIONS (11)
  - BONE PAIN [None]
  - FALL [None]
  - FATIGUE [None]
  - RED BLOOD CELL COUNT DECREASED [None]
  - COMPLEMENT FACTOR ABNORMAL [None]
  - ARTHRALGIA [None]
  - SINUS CONGESTION [None]
  - PAIN [None]
  - PRODUCTIVE COUGH [None]
  - MUSCULOSKELETAL STIFFNESS [None]
  - HEADACHE [None]
